FAERS Safety Report 11406892 (Version 4)
Quarter: 2016Q4

REPORT INFORMATION
  Report Type: Report from Study
  Country: JP (occurrence: JP)
  Receive Date: 20150821
  Receipt Date: 20161027
  Transmission Date: 20170206
  Serious: Yes (Death)
  Sender: FDA-Public Use
  Company Number: JP-PFIZER INC-2015275922

PATIENT
  Age: 60 Year
  Sex: Female
  Weight: 48.6 kg

DRUGS (23)
  1. L-ASPARTATE POTASSIUM [Concomitant]
     Dosage: UNK
     Dates: start: 20150812, end: 20150816
  2. 5% GLUCOSE INJECTION [Concomitant]
     Active Substance: DEXTROSE
     Dosage: UNK
     Dates: start: 20150812, end: 20150816
  3. ALDREB [Concomitant]
     Dosage: UNK
     Dates: start: 20150812, end: 20150813
  4. TIGECYCLINE. [Suspect]
     Active Substance: TIGECYCLINE
     Indication: ABDOMINAL ABSCESS
     Dosage: 100 MG, 1X/DAY
     Route: 042
     Dates: start: 20150813
  5. MAGNESIUM SULFATE. [Concomitant]
     Active Substance: MAGNESIUM SULFATE
     Dosage: UNK
     Dates: start: 20150812, end: 20150813
  6. ELNEOPA NO.1 [Concomitant]
     Dosage: UNK
     Dates: start: 20150812, end: 20150816
  7. ENTERONON-R [Concomitant]
     Active Substance: PROBIOTICS NOS
     Dosage: 15 DF, 3X/DAY
     Dates: start: 20150811, end: 20150816
  8. TAKEPRON [Concomitant]
     Active Substance: LANSOPRAZOLE
     Dosage: 5 DF, 1X/DAY
     Dates: start: 20150811, end: 20150816
  9. ISOTONIC SODIUM CHLORIDE SOLUTION [Concomitant]
     Active Substance: SODIUM CHLORIDE
     Dosage: UNK
     Dates: start: 20150812, end: 20150813
  10. ALBUMINAR [Concomitant]
     Active Substance: ALBUMIN HUMAN
     Dosage: 100 ML, DAILY
     Dates: start: 20150812, end: 20150812
  11. MEROPEN [Concomitant]
     Active Substance: MEROPENEM
  12. RACOL NF [Concomitant]
     Dosage: 30 DF, 1X/DAY
     Dates: start: 20150807, end: 20150816
  13. NOR-ADRENALIN [Concomitant]
     Dosage: UNK
     Dates: start: 20150812
  14. TIGECYCLINE. [Suspect]
     Active Substance: TIGECYCLINE
     Dosage: 25 MG, 1X/DAY
     Route: 042
     Dates: start: 20150814
  15. COLISTIN [Concomitant]
     Active Substance: COLISTIN
  16. ANAEMETRO [Concomitant]
     Active Substance: METRONIDAZOLE
     Dosage: UNK
     Dates: start: 20150812, end: 20150816
  17. VANCOMYCIN [Concomitant]
     Active Substance: VANCOMYCIN
  18. DOBUTREX [Concomitant]
     Active Substance: DOBUTAMINE HYDROCHLORIDE
     Dosage: UNK
     Dates: start: 20150812, end: 20150816
  19. TIGECYCLINE. [Suspect]
     Active Substance: TIGECYCLINE
     Dosage: 25 MG, 1X/DAY
     Route: 042
     Dates: start: 20150814
  20. LOPEMIN FOR CHILDREN [Concomitant]
     Dosage: 20 G, 2X/DAY
     Dates: start: 20150811, end: 20150816
  21. OTSUKA NORMAL SALINE [Concomitant]
     Dosage: UNK
     Dates: start: 20150812, end: 20150816
  22. TIENAM [Concomitant]
     Active Substance: CILASTATIN SODIUM\IMIPENEM
     Dosage: UNK
     Dates: start: 20150812, end: 20150816
  23. MEYLON [Concomitant]
     Active Substance: SODIUM BICARBONATE
     Dosage: UNK
     Dates: start: 20150815

REACTIONS (2)
  - Abdominal abscess [Fatal]
  - Condition aggravated [Fatal]

NARRATIVE: CASE EVENT DATE: 20150816
